FAERS Safety Report 8775219 (Version 2)
Quarter: 2013Q1

REPORT INFORMATION
  Report Type: Report from Study
  Country: IE (occurrence: IE)
  Receive Date: 20120910
  Receipt Date: 20130123
  Transmission Date: 20140127
  Serious: Yes (Hospitalization)
  Sender: FDA-Public Use
  Company Number: IE-TEVA-357121ISR

PATIENT
  Age: 48 Year
  Sex: Female

DRUGS (5)
  1. COPAXONE [Suspect]
     Indication: RELAPSING-REMITTING MULTIPLE SCLEROSIS
     Dosage: 20 MILLIGRAM DAILY;
     Route: 058
     Dates: start: 20091102
  2. DETRUSITOL SR [Concomitant]
     Dosage: 10 MILLIGRAM DAILY;
     Route: 048
  3. SERC [Concomitant]
     Dosage: 32 MILLIGRAM DAILY;
     Route: 048
  4. LIORESAL [Concomitant]
     Dosage: 10 MILLIGRAM DAILY;
     Route: 048
  5. MICRODANTIN [Concomitant]
     Dosage: 50 MILLIGRAM DAILY;
     Route: 048

REACTIONS (5)
  - Immediate post-injection reaction [Recovered/Resolved]
  - Flushing [Recovered/Resolved]
  - Chest discomfort [Recovered/Resolved]
  - Wheezing [Recovered/Resolved]
  - Hyperhidrosis [Recovered/Resolved]
